FAERS Safety Report 4324576-8 (Version None)
Quarter: 2004Q1

REPORT INFORMATION
  Report Type: 
  Country: None (occurrence: None)
  Receive Date: 20040325
  Receipt Date: 20040325
  Transmission Date: 20041129
  Serious: No
  Sender: FDA-Public Use
  Company Number: None

PATIENT
  Age: 40 Year
  Sex: Male
  Weight: 102.0593 kg

DRUGS (1)
  1. MONOXILILLIAN [Suspect]
     Dosage: 2 TBSP 8 HOURS ORAL
     Route: 048

REACTIONS (1)
  - MEDICATION ERROR [None]
